FAERS Safety Report 24659221 (Version 1)
Quarter: 2024Q4

REPORT INFORMATION
  Report Type: Spontaneous
  Country: GB (occurrence: GB)
  Receive Date: 20241125
  Receipt Date: 20241125
  Transmission Date: 20250114
  Serious: Yes (Other)
  Sender: CELLTRION
  Company Number: None

PATIENT

DRUGS (1)
  1. YUFLYMA [Suspect]
     Active Substance: ADALIMUMAB-AATY
     Indication: Product used for unknown indication
     Dosage: 40 MILLIGRAM; 40MG/0.8ML SOLUTION FOR INJECTION PRE-FILLED DISPOSABLE DEVICES

REACTIONS (2)
  - Formication [Unknown]
  - Pruritus [Unknown]
